FAERS Safety Report 9735281 (Version 2)
Quarter: 2013Q4

REPORT INFORMATION
  Report Type: Report from Study
  Country: DE (occurrence: DE)
  Receive Date: 20131206
  Receipt Date: 20131209
  Transmission Date: 20140711
  Serious: Yes (Hospitalization)
  Sender: FDA-Public Use
  Company Number: DE-ROCHE-1311807

PATIENT
  Age: 57 Year
  Sex: Female
  Weight: 70 kg

DRUGS (3)
  1. CAPECITABINE [Suspect]
     Indication: COLORECTAL CANCER METASTATIC
     Dosage: DATE OF LAST DOSE PRIOR TO SAE: 21/NOV/2013
     Route: 048
     Dates: start: 20130829
  2. BEVACIZUMAB [Suspect]
     Indication: COLORECTAL CANCER METASTATIC
     Dosage: ALL 21 DAYS. DATE OF LAST DOSE PRIOR TO SAE: 21/NOV/2013
     Route: 042
     Dates: start: 20130829
  3. IRINOTECAN [Suspect]
     Indication: COLORECTAL CANCER METASTATIC
     Dosage: ALL 21 DAYS. DATE OF LAST DOSE PRIOR TO SAE: 21/NOV/2013
     Route: 042
     Dates: start: 20130829

REACTIONS (1)
  - Gastric perforation [Recovering/Resolving]
